FAERS Safety Report 17297337 (Version 3)
Quarter: 2020Q1

REPORT INFORMATION
  Report Type: Report from Study
  Country: IT (occurrence: IT)
  Receive Date: 20200122
  Receipt Date: 20200218
  Transmission Date: 20200409
  Serious: Yes (Death, Hospitalization, Other)
  Sender: FDA-Public Use
  Company Number: IT-BRISTOL-MYERS SQUIBB COMPANY-BMS-2020-003099

PATIENT
  Age: 46 Year
  Sex: Male

DRUGS (3)
  1. NIVOLUMAB [Suspect]
     Active Substance: NIVOLUMAB
     Indication: METASTATIC RENAL CELL CARCINOMA
     Dosage: 3 MILLIGRAM/KILOGRAM(315 MG), Q3WK
     Route: 042
     Dates: start: 20191206, end: 20191206
  2. TACHIDOL [Concomitant]
     Active Substance: ACETAMINOPHEN\CODEINE PHOSPHATE
     Indication: PRODUCT USED FOR UNKNOWN INDICATION
     Dosage: 2 TAB, BID
     Route: 065
  3. IPILIMUMAB [Suspect]
     Active Substance: IPILIMUMAB
     Indication: METASTATIC RENAL CELL CARCINOMA
     Dosage: 1 MILLIGRAM/KILOGRAM (103 MG), Q3WK
     Route: 042
     Dates: start: 20191206, end: 20191206

REACTIONS (4)
  - Hypertransaminasaemia [Unknown]
  - Jaundice [Unknown]
  - Multiple organ dysfunction syndrome [Fatal]
  - Ocular icterus [Unknown]

NARRATIVE: CASE EVENT DATE: 20200102
